FAERS Safety Report 15397508 (Version 1)
Quarter: 2018Q3

REPORT INFORMATION
  Report Type: Spontaneous
  Country: IR (occurrence: IR)
  Receive Date: 20180918
  Receipt Date: 20180918
  Transmission Date: 20181010
  Serious: Yes (Hospitalization, Other)
  Sender: FDA-Public Use
  Company Number: IR-SA-2018SA163396

PATIENT
  Age: 46 Year
  Sex: Female

DRUGS (7)
  1. METOPROLOL TARTRATE. [Suspect]
     Active Substance: METOPROLOL TARTRATE
     Dosage: 50 MG, QD
  2. FUROSEMIDE. [Suspect]
     Active Substance: FUROSEMIDE
     Dosage: 20 MG, Q12H
  3. CARVEDILOL. [Suspect]
     Active Substance: CARVEDILOL
  4. GLIBENCLAMIDE [Suspect]
     Active Substance: GLYBURIDE
  5. AMIODARONE HYDROCHLORIDE. [Suspect]
     Active Substance: AMIODARONE HYDROCHLORIDE
     Dosage: UNK
     Route: 042
  6. LEVOTHYROXINE SODIUM. [Suspect]
     Active Substance: LEVOTHYROXINE SODIUM
     Dosage: 1 DF, QD
     Route: 058
  7. TRIAMTERENE HCTZ [Suspect]
     Active Substance: HYDROCHLOROTHIAZIDE\TRIAMTERENE
     Dosage: 1 DF, QD

REACTIONS (22)
  - Ventricular enlargement [Recovering/Resolving]
  - Pulmonary hypertension [Recovering/Resolving]
  - Blood potassium decreased [Recovered/Resolved]
  - Ventricular extrasystoles [Recovering/Resolving]
  - Bradycardia [Recovering/Resolving]
  - Adrenal adenoma [Recovering/Resolving]
  - Chest pain [Recovering/Resolving]
  - Pleural effusion [Recovering/Resolving]
  - Torsade de pointes [Recovering/Resolving]
  - Palpitations [Recovering/Resolving]
  - Electrocardiogram QT prolonged [Recovering/Resolving]
  - Hyperaldosteronism [Recovering/Resolving]
  - Ventricular tachycardia [Recovering/Resolving]
  - Metabolic alkalosis [Recovering/Resolving]
  - Left ventricular dysfunction [Recovering/Resolving]
  - Acute coronary syndrome [Recovering/Resolving]
  - Ventricular arrhythmia [Recovering/Resolving]
  - Blood pressure increased [Recovering/Resolving]
  - Heart rate increased [Recovering/Resolving]
  - Tricuspid valve incompetence [Recovering/Resolving]
  - Dizziness [Recovering/Resolving]
  - Hypokinesia [Recovering/Resolving]
